FAERS Safety Report 5162802-6 (Version None)
Quarter: 2006Q4

REPORT INFORMATION
  Report Type: 
  Country: None (occurrence: None)
  Receive Date: 20061201
  Receipt Date: 20060410
  Transmission Date: 20070319
  Serious: Yes (Hospitalization, Other)
  Sender: FDA-Public Use
  Company Number: US-AMGEN-KDL175755

PATIENT
  Sex: Female

DRUGS (3)
  1. ENBREL [Suspect]
     Indication: RHEUMATOID ARTHRITIS
     Route: 058
     Dates: start: 20030731, end: 20051001
  2. METHOTREXATE [Concomitant]
     Dates: start: 20000101
  3. PREDNISONE TAB [Concomitant]

REACTIONS (6)
  - CATARACT [None]
  - KNEE ARTHROPLASTY [None]
  - POSTOPERATIVE INFECTION [None]
  - UVEITIS [None]
  - VITRITIS [None]
  - WOUND INFECTION STAPHYLOCOCCAL [None]
